FAERS Safety Report 9341722 (Version 1)
Quarter: 2013Q2

REPORT INFORMATION
  Report Type: Spontaneous
  Country: CN (occurrence: CN)
  Receive Date: 20130611
  Receipt Date: 20130611
  Transmission Date: 20140414
  Serious: Yes (Other)
  Sender: FDA-Public Use
  Company Number: CN-ASTRAZENECA-2013SE41456

PATIENT
  Sex: Female
  Weight: 49 kg

DRUGS (2)
  1. QUETIAPINE FUMARATE [Suspect]
     Indication: EMOTIONAL DISORDER
     Route: 048
     Dates: start: 20120514, end: 20120605
  2. DIVALPROEX SODIUM [Concomitant]
     Indication: EMOTIONAL DISORDER
     Route: 048
     Dates: start: 20120531, end: 20121113

REACTIONS (1)
  - Hepatic function abnormal [Recovered/Resolved]
